FAERS Safety Report 16763584 (Version 1)
Quarter: 2019Q3

REPORT INFORMATION
  Report Type: Spontaneous
  Country: DE (occurrence: DE)
  Receive Date: 20190902
  Receipt Date: 20190902
  Transmission Date: 20191005
  Serious: Yes (Other)
  Sender: FDA-Public Use
  Company Number: DE-PFIZER INC-2019369572

PATIENT
  Age: 57 Year
  Sex: Female

DRUGS (1)
  1. PREGABALINE PFIZER [Suspect]
     Active Substance: PREGABALIN
     Dosage: 50 MG, UNK

REACTIONS (6)
  - Pain [Unknown]
  - Dysstasia [Unknown]
  - Drug ineffective [Unknown]
  - Gait disturbance [Unknown]
  - Epilepsy [Unknown]
  - Anxiety [Unknown]
